FAERS Safety Report 4677130-2 (Version None)
Quarter: 2005Q2

REPORT INFORMATION
  Report Type: 
  Country: None (occurrence: None)
  Receive Date: 20050525
  Receipt Date: 20050525
  Transmission Date: 20051028
  Serious: Yes (Life-Threatening, Hospitalization)
  Sender: FDA-Public Use
  Company Number: None

PATIENT
  Age: 40 Year
  Sex: Female
  Weight: 84.369 kg

DRUGS (1)
  1. SEPTRA DS [Suspect]
     Indication: PHARYNGITIS
     Dosage: 1 TAB   BID   ORAL
     Route: 048
     Dates: start: 20050504, end: 20050513

REACTIONS (3)
  - DIZZINESS [None]
  - MALAISE [None]
  - THROMBOCYTOPENIA [None]
